FAERS Safety Report 5052905-9 (Version None)
Quarter: 2006Q3

REPORT INFORMATION
  Report Type: 
  Country: None (occurrence: None)
  Receive Date: 20060712
  Receipt Date: 20060704
  Transmission Date: 20061208
  Serious: Yes (Other)
  Sender: FDA-Public Use
  Company Number: 2006082745

PATIENT
  Age: 48 Year
  Sex: Male
  Weight: 79.3795 kg

DRUGS (3)
  1. KAOPECTATE (BISMUTH SUBSALICYLATE) [Suspect]
     Indication: DIARRHOEA
     Dosage: 2 TABLESPOONS 2-3 TIMES IN 1 DAY, ORAL
     Route: 048
     Dates: start: 20060702, end: 20060702
  2. BUPROPION HYDROCHLORIDE [Concomitant]
  3. ESCITALOPRAM (ESCITALOPRAM) [Concomitant]

REACTIONS (3)
  - ARTHROPOD BITE [None]
  - POOR QUALITY DRUG ADMINISTERED [None]
  - ROCKY MOUNTAIN SPOTTED FEVER [None]
